FAERS Safety Report 14307633 (Version 1)
Quarter: 2017Q4

REPORT INFORMATION
  Report Type: Spontaneous
  Country: US (occurrence: US)
  Receive Date: 20171219
  Receipt Date: 20171219
  Transmission Date: 20180321
  Serious: No
  Sender: FDA-Public Use
  Company Number: None

PATIENT
  Age: 60 Year
  Sex: Female

DRUGS (1)
  1. AFINITOR [Suspect]
     Active Substance: EVEROLIMUS

REACTIONS (4)
  - Fatigue [None]
  - Pollakiuria [None]
  - Tooth extraction [None]
  - Mouth swelling [None]

NARRATIVE: CASE EVENT DATE: 20171010
